FAERS Safety Report 20307964 (Version 2)
Quarter: 2022Q1

REPORT INFORMATION
  Report Type: Spontaneous
  Country: IT (occurrence: IT)
  Receive Date: 20220107
  Receipt Date: 20220120
  Transmission Date: 20220423
  Serious: Yes (Other)
  Sender: FDA-Public Use
  Company Number: IT-Accord-249226

PATIENT
  Age: 76 Year
  Sex: Female

DRUGS (2)
  1. CARBOPLATIN [Suspect]
     Active Substance: CARBOPLATIN
     Indication: Ovarian cancer
     Dosage: 3 CYCLE?500 MG, 1 CYCLE IN 2020 AS PER 16-STEP DESENSITIZATION PROTOCOL
     Dates: start: 201409, end: 2014
  2. PACLITAXEL [Concomitant]
     Active Substance: PACLITAXEL
     Indication: Ovarian cancer

REACTIONS (7)
  - Drug hypersensitivity [Unknown]
  - Flushing [Unknown]
  - Hyperhidrosis [Unknown]
  - Chest discomfort [Unknown]
  - Urticaria [Unknown]
  - Angioedema [Unknown]
  - Throat tightness [Unknown]

NARRATIVE: CASE EVENT DATE: 20140101
